FAERS Safety Report 5244101-7 (Version None)
Quarter: 2007Q1

REPORT INFORMATION
  Report Type: 
  Country: None (occurrence: None)
  Receive Date: 20070216
  Receipt Date: 20070131
  Transmission Date: 20070707
  Serious: No
  Sender: FDA-Public Use
  Company Number: E2090-00177-SPO-JP

PATIENT
  Age: 70 Year
  Sex: Male

DRUGS (1)
  1. EXCEGRAN (ZONISAMIDE) [Suspect]
     Dosage: ORAL
     Route: 048

REACTIONS (3)
  - DRUG HYPERSENSITIVITY [None]
  - HERPES SIMPLEX SEROLOGY POSITIVE [None]
  - TOXIC EPIDERMAL NECROLYSIS [None]
